FAERS Safety Report 9398520 (Version 1)
Quarter: 2013Q3

REPORT INFORMATION
  Report Type: Spontaneous
  Country: US (occurrence: US)
  Receive Date: 20130712
  Receipt Date: 20130712
  Transmission Date: 20140515
  Serious: Yes (Other)
  Sender: FDA-Public Use
  Company Number: PHHY2013US072164

PATIENT
  Sex: Female

DRUGS (1)
  1. METFORMIN [Suspect]
     Dosage: UNK

REACTIONS (3)
  - Foetal death [Unknown]
  - Subchorionic haematoma [Unknown]
  - Maternal exposure during pregnancy [Unknown]
